FAERS Safety Report 25994671 (Version 3)
Quarter: 2025Q4

REPORT INFORMATION
  Report Type: Spontaneous
  Country: US (occurrence: US)
  Receive Date: 20251104
  Receipt Date: 20251230
  Transmission Date: 20260117
  Serious: No
  Sender: GLAXOSMITHKLINE
  Company Number: US-GSK-US2025141398

PATIENT
  Sex: Female

DRUGS (1)
  1. TRELEGY ELLIPTA [Suspect]
     Active Substance: FLUTICASONE FUROATE\UMECLIDINIUM BROMIDE\VILANTEROL TRIFENATATE
     Indication: Product used for unknown indication
     Dosage: UNK,200/62.5/25MCG

REACTIONS (2)
  - Pulmonary function test decreased [Unknown]
  - Product complaint [Unknown]
